FAERS Safety Report 20749847 (Version 1)
Quarter: 2022Q2

REPORT INFORMATION
  Report Type: Spontaneous
  Country: US (occurrence: None)
  Receive Date: 20220425
  Receipt Date: 20220425
  Transmission Date: 20220721
  Serious: Yes (Death)
  Sender: FDA-Public Use
  Company Number: None

PATIENT
  Age: 38 Year
  Sex: Male

DRUGS (1)
  1. SOFOSBUVIR\VELPATASVIR [Suspect]
     Active Substance: SOFOSBUVIR\VELPATASVIR
     Indication: Chronic hepatitis
     Dosage: OTHER QUANTITY : 400/100MG;?FREQUENCY : DAILY;?
     Route: 048
     Dates: start: 20220202, end: 20220421

REACTIONS (1)
  - Death [None]

NARRATIVE: CASE EVENT DATE: 20220421
